FAERS Safety Report 20489092 (Version 1)
Quarter: 2022Q1

REPORT INFORMATION
  Report Type: Spontaneous
  Country: US (occurrence: None)
  Receive Date: 20220217
  Receipt Date: 20220217
  Transmission Date: 20220424
  Serious: Yes (Death)
  Sender: FDA-Public Use
  Company Number: None

PATIENT
  Age: 72 Year
  Sex: Male
  Weight: 129 kg

DRUGS (1)
  1. BARICITINIB [Suspect]
     Active Substance: BARICITINIB
     Indication: Upper respiratory tract infection
     Dosage: FREQUENCY : DAILY;?
     Route: 048
     Dates: start: 20220129, end: 20220212

REACTIONS (5)
  - Sepsis [None]
  - COVID-19 pneumonia [None]
  - Hypotension [None]
  - Respiratory depression [None]
  - Cardio-respiratory arrest [None]

NARRATIVE: CASE EVENT DATE: 20220213
